FAERS Safety Report 9782600 (Version 2)
Quarter: 2014Q1

REPORT INFORMATION
  Report Type: Spontaneous
  Country: US (occurrence: US)
  Receive Date: 20131226
  Receipt Date: 20140106
  Transmission Date: 20141002
  Serious: Yes (Other)
  Sender: FDA-Public Use
  Company Number: PHEH2013US026189

PATIENT
  Age: 56 Year
  Sex: Male

DRUGS (3)
  1. TRILEPTAL [Suspect]
     Indication: CONVULSION
     Dosage: 1.5 DF, BID
     Route: 048
     Dates: start: 20120313
  2. TRILEPTAL [Suspect]
     Dosage: 1.5 DF, BID
     Route: 048
  3. ANTIDEPRESSANTS [Concomitant]
     Dosage: UNK UKN, UNK

REACTIONS (5)
  - Convulsion [Recovering/Resolving]
  - Sensory disturbance [Unknown]
  - Dizziness [Unknown]
  - Lethargy [Unknown]
  - Drug ineffective [Recovering/Resolving]
